FAERS Safety Report 24302945 (Version 1)
Quarter: 2024Q3

REPORT INFORMATION
  Report Type: Spontaneous
  Country: US (occurrence: US)
  Receive Date: 20240910
  Receipt Date: 20240910
  Transmission Date: 20241017
  Serious: No
  Sender: BAYER
  Company Number: US-BAYER-2024A128965

PATIENT
  Age: 62 Year
  Sex: Female

DRUGS (2)
  1. GADAVIST [Suspect]
     Active Substance: GADOBUTROL
     Indication: Scan brain
     Dosage: 8 ML
     Route: 030
     Dates: start: 20240907
  2. GADAVIST [Suspect]
     Active Substance: GADOBUTROL
     Indication: Scan brain
     Dosage: 9 ML
     Route: 042
     Dates: start: 20240908

REACTIONS (2)
  - Thirst [None]
  - Incorrect route of product administration [None]

NARRATIVE: CASE EVENT DATE: 20240907
